FAERS Safety Report 23744407 (Version 1)
Quarter: 2024Q2

REPORT INFORMATION
  Report Type: Report from Study
  Country: KR (occurrence: KR)
  Receive Date: 20240415
  Receipt Date: 20240415
  Transmission Date: 20240716
  Serious: Yes (Other)
  Sender: FDA-Public Use
  Company Number: KR-002147023-NVSC2024KR057524

PATIENT
  Age: 53 Year
  Sex: Female

DRUGS (15)
  1. LUTATHERA [Suspect]
     Active Substance: LUTETIUM OXODOTREOTIDE LU-177
     Indication: Somatostatin receptor scan normal
     Dosage: 7.4 GBQ
     Route: 042
     Dates: start: 20230601, end: 20230601
  2. LUTATHERA [Suspect]
     Active Substance: LUTETIUM OXODOTREOTIDE LU-177
     Dosage: 7.4 GBQ
     Route: 042
     Dates: start: 20230803, end: 20230803
  3. LUTATHERA [Suspect]
     Active Substance: LUTETIUM OXODOTREOTIDE LU-177
     Dosage: 7.4 GBQ
     Route: 042
     Dates: start: 20231005, end: 20231005
  4. LUTATHERA [Suspect]
     Active Substance: LUTETIUM OXODOTREOTIDE LU-177
     Dosage: 7.4 GBQ
     Route: 042
     Dates: start: 20231207, end: 20231207
  5. ARGININE\LYSINE [Suspect]
     Active Substance: ARGININE\LYSINE
     Indication: Exposure to radiation
     Dosage: 1000 ML
     Route: 042
     Dates: start: 20230601, end: 20230601
  6. ARGININE\LYSINE [Suspect]
     Active Substance: ARGININE\LYSINE
     Dosage: 1000 ML
     Route: 042
     Dates: start: 20230803, end: 20230803
  7. ARGININE\LYSINE [Suspect]
     Active Substance: ARGININE\LYSINE
     Dosage: 1000 ML
     Route: 042
     Dates: start: 20231005, end: 20231005
  8. ARGININE\LYSINE [Suspect]
     Active Substance: ARGININE\LYSINE
     Dosage: 1000 ML
     Route: 042
     Dates: start: 20231207, end: 20231207
  9. ONDANSETRON [Concomitant]
     Active Substance: ONDANSETRON
     Indication: Antiemetic supportive care
     Dosage: 4 ML, QD
     Route: 042
     Dates: start: 20230601, end: 20230603
  10. ONDANSETRON [Concomitant]
     Active Substance: ONDANSETRON
     Dosage: 4 ML, QD
     Route: 042
     Dates: start: 20230803, end: 20230803
  11. ONDANSETRON [Concomitant]
     Active Substance: ONDANSETRON
     Dosage: 4 ML, QD
     Route: 042
     Dates: start: 20231005, end: 20231005
  12. ONDANSETRON [Concomitant]
     Active Substance: ONDANSETRON
     Dosage: 4 ML, QD
     Route: 042
     Dates: start: 20231207, end: 20231207
  13. ULTRACET [Concomitant]
     Active Substance: ACETAMINOPHEN\TRAMADOL HYDROCHLORIDE
     Indication: Pain prophylaxis
     Dosage: 1 DOSAGE FORM, TID
     Route: 048
     Dates: start: 20230110
  14. MEDILAC DS [Concomitant]
     Indication: Prophylaxis against gastrointestinal ulcer
     Dosage: 250 MG, TID
     Route: 048
     Dates: start: 20230131
  15. POLYBUTIN [Concomitant]
     Indication: Gastrointestinal disorder
     Dosage: 1 DOSAGE FORM, TID
     Route: 048
     Dates: start: 20230131

REACTIONS (3)
  - Hyperbilirubinaemia [Recovered/Resolved]
  - Dyspepsia [Recovered/Resolved]
  - Liver function test abnormal [Recovered/Resolved]

NARRATIVE: CASE EVENT DATE: 20230601
